FAERS Safety Report 8512100 (Version 4)
Quarter: 2014Q1

REPORT INFORMATION
  Report Type: Spontaneous
  Country: US (occurrence: US)
  Receive Date: 20120413
  Receipt Date: 20140114
  Transmission Date: 20141002
  Serious: Yes (Disabling, Other)
  Sender: FDA-Public Use
  Company Number: US-ASTRAZENECA-2011SE41529

PATIENT
  Age: 16172 Day
  Sex: Female

DRUGS (18)
  1. NEXIUM [Suspect]
     Indication: DYSPEPSIA
     Dosage: DAILY
     Route: 048
     Dates: start: 1997
  2. PRILOSEC [Suspect]
     Route: 048
  3. PREVACID [Concomitant]
  4. PEPTO BISMOL [Concomitant]
  5. TUMS/ CALCIUM CARBONATE [Concomitant]
  6. TUMS/ CALCIUM CARBONATE [Concomitant]
     Route: 048
     Dates: start: 20041202
  7. PROVENTIL [Concomitant]
     Indication: ASTHMA
  8. SINGULAIR [Concomitant]
     Indication: ASTHMA
  9. TRAMADOL [Concomitant]
     Indication: PAIN
  10. TRAMADOL [Concomitant]
     Indication: PAIN
     Dates: start: 20101112
  11. LISINOPRIL [Concomitant]
     Indication: HYPERTENSION
  12. LEVOTHYROXINE [Concomitant]
     Indication: THYROID DISORDER
  13. HORMONE REPLACEMENT [Concomitant]
  14. RANITIDINE HCL [Concomitant]
     Route: 048
     Dates: start: 20070421
  15. DYAZIDE [Concomitant]
     Dosage: 37.5/ 25 MG DAILY
     Route: 048
  16. LOPERAMIDE HCL [Concomitant]
     Route: 048
  17. POTASSIUM CL [Concomitant]
  18. PREDNISONE [Concomitant]
     Route: 048
     Dates: start: 20050509

REACTIONS (10)
  - Arthropathy [Unknown]
  - Osteoarthritis [Unknown]
  - Osteoporosis [Unknown]
  - Arthritis [Unknown]
  - Bone loss [Unknown]
  - Multiple fractures [Unknown]
  - Hypothyroidism [Unknown]
  - Exostosis [Unknown]
  - Intervertebral disc degeneration [Unknown]
  - Rheumatic disorder [Unknown]
